FAERS Safety Report 11909249 (Version 1)
Quarter: 2016Q1

REPORT INFORMATION
  Report Type: Spontaneous
  Country: FR (occurrence: FR)
  Receive Date: 20160112
  Receipt Date: 20160112
  Transmission Date: 20160526
  Serious: Yes (Other)
  Sender: FDA-Public Use
  Company Number: FR-ACCORD-036965

PATIENT
  Age: 58 Year
  Sex: Female

DRUGS (14)
  1. LORAMYC [Suspect]
     Active Substance: MICONAZOLE
     Indication: OROPHARYNGEAL CANDIDIASIS
     Route: 049
     Dates: end: 20151129
  2. TERCIAN [Concomitant]
     Active Substance: CYAMEMAZINE
  3. BROMAZEPAM [Concomitant]
     Active Substance: BROMAZEPAM
  4. EMEND [Suspect]
     Active Substance: APREPITANT
     Indication: NAUSEA
     Route: 048
     Dates: start: 20151116, end: 20151118
  5. ONDANSETRON ACCORD [Suspect]
     Active Substance: ONDANSETRON
     Indication: NAUSEA
     Route: 042
     Dates: start: 20151116, end: 20151118
  6. CEFTAZIDIME PANPHARMA [Suspect]
     Active Substance: CEFTAZIDIME
     Indication: BACTERAEMIA
     Route: 042
     Dates: start: 20151127, end: 20151129
  7. INEXIUM [Suspect]
     Active Substance: ESOMEPRAZOLE
     Indication: ULCER
     Route: 048
     Dates: end: 20151129
  8. VANCOMYCINE SANDOZ [Suspect]
     Active Substance: VANCOMYCIN
     Indication: BACTERAEMIA
     Route: 042
     Dates: start: 20151128
  9. ALKERAN [Suspect]
     Active Substance: MELPHALAN
     Indication: STEM CELL TRANSPLANT
     Route: 042
     Dates: start: 20151116, end: 20151116
  10. PRIMPERAN [Suspect]
     Active Substance: METOCLOPRAMIDE HYDROCHLORIDE
     Indication: NAUSEA
     Route: 048
     Dates: start: 20151116, end: 20151118
  11. UVEDOSE [Concomitant]
     Active Substance: CHOLECALCIFEROL
  12. AMIKACINE MYLAN [Suspect]
     Active Substance: AMIKACIN
     Indication: BACTERAEMIA
     Route: 042
     Dates: start: 20151127
  13. CYMBALTA [Concomitant]
     Active Substance: DULOXETINE HYDROCHLORIDE
  14. ZOLPIDEM [Concomitant]
     Active Substance: ZOLPIDEM\ZOLPIDEM TARTRATE

REACTIONS (4)
  - Erythema [Recovered/Resolved]
  - Pruritus [Recovered/Resolved]
  - Bacteraemia [Unknown]
  - Aplasia [Unknown]

NARRATIVE: CASE EVENT DATE: 20151120
